FAERS Safety Report 7570289-9 (Version None)
Quarter: 2011Q2

REPORT INFORMATION
  Report Type: 
  Country: None (occurrence: None)
  Receive Date: 20110622
  Receipt Date: 20110622
  Transmission Date: 20111010
  Serious: Yes (Other)
  Sender: FDA-Public Use
  Company Number: None

PATIENT
  Age: 74 Year
  Sex: Female
  Weight: 72.1219 kg

DRUGS (1)
  1. ARICEPT [Suspect]
     Indication: DEMENTIA ALZHEIMER'S TYPE
     Dosage: 1 QHS PO
     Route: 048
     Dates: start: 20110510, end: 20110531

REACTIONS (3)
  - MUSCLE SPASMS [None]
  - FAECES DISCOLOURED [None]
  - PRODUCT QUALITY ISSUE [None]
